FAERS Safety Report 12194547 (Version 1)
Quarter: 2016Q1

REPORT INFORMATION
  Report Type: Spontaneous
  Country: US (occurrence: None)
  Receive Date: 20160318
  Receipt Date: 20160318
  Transmission Date: 20160526
  Serious: Yes (Other)
  Sender: FDA-Public Use
  Company Number: None

PATIENT
  Age: 81 Year
  Sex: Female
  Weight: 88.45 kg

DRUGS (15)
  1. PANTAPROZOLE [Concomitant]
     Active Substance: PANTOPRAZOLE SODIUM
  2. DIOVAN [Concomitant]
     Active Substance: VALSARTAN
  3. CHLORTHALIDONE. [Concomitant]
     Active Substance: CHLORTHALIDONE
  4. CLARINEX [Concomitant]
     Active Substance: DESLORATADINE
  5. BIOTIN [Concomitant]
     Active Substance: BIOTIN
  6. PRISTIQ EXTENDED RELEASE [Suspect]
     Active Substance: DESVENLAFAXINE SUCCINATE
     Indication: DEPRESSION
     Dosage: 1X DAILY 1 AM MOUTH
     Route: 048
     Dates: start: 2013
  7. PRISTIQ EXTENDED RELEASE [Suspect]
     Active Substance: DESVENLAFAXINE SUCCINATE
     Indication: ANXIETY
     Dosage: 1X DAILY 1 AM MOUTH
     Route: 048
     Dates: start: 2013
  8. L-THYROXINE [Concomitant]
     Active Substance: LEVOTHYROXINE
  9. BYSTOLIC [Concomitant]
     Active Substance: NEBIVOLOL HYDROCHLORIDE
  10. ASPIRIN. [Concomitant]
     Active Substance: ASPIRIN
  11. VIT B COMPLEX [Concomitant]
  12. IRON [Concomitant]
     Active Substance: IRON
  13. AMLODIPINE BESYLATE. [Concomitant]
     Active Substance: AMLODIPINE BESYLATE
  14. ANASTROZOLE. [Concomitant]
     Active Substance: ANASTROZOLE
  15. CALCIUM+V.D13 [Concomitant]

REACTIONS (10)
  - Foot operation [None]
  - Drug dose omission [None]
  - Crying [None]
  - Emotional disorder [None]
  - Irritability [None]
  - Dyskinesia [None]
  - Chills [None]
  - Anxiety [None]
  - Anger [None]
  - Logorrhoea [None]

NARRATIVE: CASE EVENT DATE: 201601
